FAERS Safety Report 8801973 (Version 2)
Quarter: 2012Q4

REPORT INFORMATION
  Report Type: 
  Country: AU (occurrence: AU)
  Receive Date: 20120921
  Receipt Date: 20121106
  Transmission Date: 20130627
  Serious: Yes (Other)
  Sender: FDA-Public Use
  Company Number: AU-SANOFI-AVENTIS-2012SA068160

PATIENT
  Sex: Male

DRUGS (2)
  1. LANTUS [Suspect]
     Indication: DIABETES MELLITUS MANAGEMENT
     Dosage: Dose:10 unit(s)
     Route: 058
     Dates: start: 201208
  2. LANTUS [Suspect]
     Indication: DIABETES MELLITUS MANAGEMENT
     Dosage: Dose:20 unit(s)
     Route: 065

REACTIONS (4)
  - Major depression [Recovered/Resolved]
  - Personality change [Recovered/Resolved]
  - Lacrimation increased [Recovered/Resolved]
  - Hypothyroidism [Recovered/Resolved]
